FAERS Safety Report 8785416 (Version 1)
Quarter: 2012Q4

REPORT INFORMATION
  Report Type: 
  Country: US (occurrence: US)
  Receive Date: 20120914
  Receipt Date: 20120914
  Transmission Date: 20130627
  Serious: Yes (Other)
  Sender: FDA-Public Use
  Company Number: US-ELI_LILLY_AND_COMPANY-US201209000865

PATIENT
  Sex: Female

DRUGS (1)
  1. HUMAN INSULIN [Suspect]
     Dosage: UNK, unknown

REACTIONS (4)
  - Vascular graft complication [Unknown]
  - Vascular insufficiency [Unknown]
  - Bacterial infection [Unknown]
  - Rash [Unknown]
